FAERS Safety Report 18208591 (Version 1)
Quarter: 2020Q3

REPORT INFORMATION
  Report Type: Spontaneous
  Country: US (occurrence: US)
  Receive Date: 20200828
  Receipt Date: 20200828
  Transmission Date: 20201103
  Serious: Yes (Disabling, Other)
  Sender: FDA-Public Use
  Company Number: US-PURDUE-USA-2020-0156479

PATIENT
  Sex: Male

DRUGS (7)
  1. DESOXYN [Suspect]
     Active Substance: METHAMPHETAMINE HYDROCHLORIDE
     Indication: PRODUCT USED FOR UNKNOWN INDICATION
     Dosage: 5 MG, 10 MG, 15MG, 20MG, 25MG
     Route: 065
  2. ADDERALL [Suspect]
     Active Substance: AMPHETAMINE ASPARTATE\AMPHETAMINE SULFATE\DEXTROAMPHETAMINE SACCHARATE\DEXTROAMPHETAMINE SULFATE
     Indication: UNEVALUABLE THERAPY
     Dosage: UNK
     Route: 065
     Dates: end: 2020
  3. VALIUM [Suspect]
     Active Substance: DIAZEPAM
     Indication: NERVE INJURY
     Dosage: UNK
     Route: 065
     Dates: end: 2011
  4. HYDROCODONE BITARTRATE (SIMILAR TO NDA 206627) [Suspect]
     Active Substance: HYDROCODONE BITARTRATE
     Indication: PAIN
     Route: 048
  5. TRAZODONE [Suspect]
     Active Substance: TRAZODONE HYDROCHLORIDE
     Indication: SLEEP DISORDER
     Dosage: UNK
     Route: 065
     Dates: end: 2013
  6. SEROQUEL [Suspect]
     Active Substance: QUETIAPINE FUMARATE
     Indication: PRODUCT USED FOR UNKNOWN INDICATION
     Dosage: 200 MG AT NIGHT AND 100 MG THE NEX MORNING, DEPENDS ON THE DAY
     Route: 048
     Dates: start: 2017
  7. LISINOPRIL                         /00894002/ [Suspect]
     Active Substance: LISINOPRIL
     Indication: BLOOD PRESSURE MANAGEMENT
     Dosage: 10 MG, HS, 1 TAB
     Route: 048
     Dates: start: 2017

REACTIONS (8)
  - Hallucination [Recovered/Resolved]
  - Drug dependence [Unknown]
  - Disability [Not Recovered/Not Resolved]
  - Suicidal ideation [Unknown]
  - Cognitive disorder [Unknown]
  - Paranoia [Recovered/Resolved]
  - Unevaluable event [Recovered/Resolved]
  - Anger [Recovered/Resolved]
